FAERS Safety Report 10085734 (Version 3)
Quarter: 2014Q2

REPORT INFORMATION
  Report Type: Spontaneous
  Country: DE (occurrence: DE)
  Receive Date: 20140418
  Receipt Date: 20140610
  Transmission Date: 20141212
  Serious: Yes (Hospitalization, Other)
  Sender: FDA-Public Use
  Company Number: DE-JNJFOC-20140408922

PATIENT
  Sex: Female
  Weight: 84 kg

DRUGS (4)
  1. XARELTO [Suspect]
     Indication: PRODUCT USED FOR UNKNOWN INDICATION
     Route: 048
  2. METOPROLOL [Concomitant]
     Route: 065
  3. TORASEMID [Concomitant]
     Route: 065
  4. PREDNISOLON [Concomitant]
     Indication: POLYMYALGIA RHEUMATICA
     Route: 065

REACTIONS (15)
  - Loss of consciousness [Unknown]
  - Heart rate increased [Unknown]
  - Localised oedema [Unknown]
  - Musculoskeletal discomfort [Unknown]
  - Blood test abnormal [Recovered/Resolved]
  - Blood alkaline phosphatase increased [Unknown]
  - Pyrexia [Unknown]
  - Chest discomfort [Unknown]
  - Blood lactate dehydrogenase increased [Unknown]
  - Dyspnoea [Unknown]
  - Hypertension [Unknown]
  - Middle insomnia [Unknown]
  - Night sweats [Unknown]
  - Hyperglycaemia [Unknown]
  - Malaise [Unknown]
